FAERS Safety Report 7868408-X (Version None)
Quarter: 2011Q4

REPORT INFORMATION
  Report Type: 
  Country: None (occurrence: None)
  Receive Date: 20111028
  Receipt Date: 20101210
  Transmission Date: 20120403
  Serious: No
  Sender: FDA-Public Use
  Company Number: US-AMGEN-USASP2010008591

PATIENT
  Age: 44 Year
  Sex: Female
  Weight: 54.422 kg

DRUGS (1)
  1. ENBREL [Suspect]
     Dosage: 25 MG, 2 TIMES/WK

REACTIONS (1)
  - STAPHYLOCOCCAL INFECTION [None]
